FAERS Safety Report 24445806 (Version 1)
Quarter: 2024Q4

REPORT INFORMATION
  Report Type: Spontaneous
  Country: FR (occurrence: FR)
  Receive Date: 20241016
  Receipt Date: 20241016
  Transmission Date: 20250114
  Serious: Yes (Other)
  Sender: EISAI
  Company Number: None

PATIENT
  Age: 63 Year
  Sex: Male
  Weight: 69 kg

DRUGS (2)
  1. LENVATINIB MESYLATE [Suspect]
     Active Substance: LENVATINIB MESYLATE
     Indication: Clear cell renal cell carcinoma
     Route: 048
     Dates: start: 20230321, end: 20230406
  2. LENVATINIB MESYLATE [Suspect]
     Active Substance: LENVATINIB MESYLATE
     Route: 048
     Dates: start: 20230407

REACTIONS (1)
  - Fatigue [Recovering/Resolving]

NARRATIVE: CASE EVENT DATE: 20230329
